FAERS Safety Report 9158488 (Version 1)
Quarter: 2013Q1

REPORT INFORMATION
  Report Type: Spontaneous
  Country: US (occurrence: US)
  Receive Date: 20130312
  Receipt Date: 20130312
  Transmission Date: 20140127
  Serious: Yes (Other)
  Sender: FDA-Public Use
  Company Number: US-AMGEN-US126637

PATIENT
  Age: 59 Year
  Sex: Male
  Weight: 101.68 kg

DRUGS (17)
  1. ENBREL [Suspect]
     Indication: PSORIATIC ARTHROPATHY
     Dosage: 25 MG, 2 TIMES/WK
     Route: 058
     Dates: start: 19980101, end: 20050214
  2. ENBREL [Suspect]
     Indication: PSORIASIS
  3. GLUCOVANCE [Concomitant]
     Dosage: 5/500, TWO PO BID
     Route: 048
     Dates: start: 2001
  4. TENORMIN [Concomitant]
     Dosage: 100 MG, QD
     Dates: start: 2001
  5. CELEBREX [Concomitant]
     Dosage: 200 MG, BID
     Dates: start: 2002
  6. DIOVAN [Concomitant]
     Dosage: UNK
     Dates: start: 2002
  7. ALLOPURINOL [Concomitant]
     Dosage: 100 UNK, QD
  8. AVANDAMET [Concomitant]
     Dosage: 1MG/500MG, QD
  9. COLACE [Concomitant]
     Dosage: UNK, QD
  10. ELAVIL                             /00002202/ [Concomitant]
     Dosage: 10 MG, QHS
  11. FLAXSEED OIL [Concomitant]
     Dosage: UNK, QD
  12. LASIX                              /00032601/ [Concomitant]
     Dosage: 20 MG, QD
  13. MIRALAX                            /00754501/ [Concomitant]
     Dosage: UNK, QD
  14. STARLIX [Concomitant]
     Dosage: 120 UNK, QD
  15. TOPROL [Concomitant]
     Dosage: 100 MG, QD
  16. FLUDARABINE [Concomitant]
     Dosage: UNK
  17. XANAX [Concomitant]
     Dosage: .5 MG, AS NEEDED

REACTIONS (1)
  - B-cell lymphoma [Unknown]
